FAERS Safety Report 7419366-3 (Version None)
Quarter: 2011Q2

REPORT INFORMATION
  Report Type: 
  Country: None (occurrence: None)
  Receive Date: 20110415
  Receipt Date: 20110401
  Transmission Date: 20111010
  Serious: Yes (Hospitalization, Other)
  Sender: FDA-Public Use
  Company Number: US-ASTRAZENECA-2009UW10723

PATIENT
  Age: 712 Month
  Sex: Female
  Weight: 83.5 kg

DRUGS (8)
  1. PLENDIL [Suspect]
     Route: 048
  2. TOPROL-XL [Concomitant]
     Indication: HYPERTENSION
     Route: 048
  3. NEXIUM [Suspect]
     Route: 048
  4. ANTIBIOTICS [Concomitant]
  5. SEROQUEL [Suspect]
     Route: 048
     Dates: start: 20090101, end: 20110303
  6. XANAX [Concomitant]
     Indication: ANXIETY
     Route: 048
  7. RHINOCORT [Suspect]
     Route: 045
  8. DIALUDID [Suspect]
     Dosage: 2 MG, EVERY FOUR HOURS, AS REQUIRED.
     Route: 065

REACTIONS (7)
  - ABNORMAL DREAMS [None]
  - UPPER RESPIRATORY TRACT INFECTION [None]
  - RENAL FAILURE [None]
  - HALLUCINATION [None]
  - AGGRESSION [None]
  - APPENDICITIS PERFORATED [None]
  - SOMNAMBULISM [None]
